APPROVED DRUG PRODUCT: MIDAZOLAM HYDROCHLORIDE
Active Ingredient: MIDAZOLAM HYDROCHLORIDE
Strength: EQ 5MG BASE/ML
Dosage Form/Route: INJECTABLE;INJECTION
Application: A075263 | Product #001
Applicant: IGI LABORATORIES INC
Approved: Jun 26, 2000 | RLD: No | RS: No | Type: DISCN